FAERS Safety Report 17323676 (Version 1)
Quarter: 2020Q1

REPORT INFORMATION
  Report Type: Report from Study
  Country: US (occurrence: US)
  Receive Date: 20200127
  Receipt Date: 20200127
  Transmission Date: 20200409
  Serious: Yes (Hospitalization)
  Sender: FDA-Public Use
  Company Number: US-ROCHE-2385204

PATIENT
  Sex: Male
  Weight: 92.16 kg

DRUGS (9)
  1. OCREVUS [Suspect]
     Active Substance: OCRELIZUMAB
     Indication: RELAPSING-REMITTING MULTIPLE SCLEROSIS
     Dosage: PREVIOUS DATE OF TREATMENT = 20/FEB/2019, 15/AUG/2018, 15/FEB/2019, 15/AUG/2019?ANTICIPATED DATE OF
     Route: 042
  2. OCREVUS [Suspect]
     Active Substance: OCRELIZUMAB
     Indication: PRIMARY PROGRESSIVE MULTIPLE SCLEROSIS
     Route: 042
     Dates: start: 20180815
  3. GABAPENTIN. [Concomitant]
     Active Substance: GABAPENTIN
     Dosage: APS / 900 MG X 2 =1800 TOTAL ;ONGOING: YES
     Route: 048
  4. FLUOXETINE [Concomitant]
     Active Substance: FLUOXETINE HYDROCHLORIDE
     Route: 048
  5. SOLIFENACIN [Concomitant]
     Active Substance: SOLIFENACIN
     Route: 048
  6. AMLODIPINE BESILATE [Concomitant]
     Active Substance: AMLODIPINE BESYLATE
     Indication: BLOOD PRESSURE MEASUREMENT
     Route: 048
  7. JANUMET [Concomitant]
     Active Substance: METFORMIN HYDROCHLORIDE\SITAGLIPTIN PHOSPHATE
     Indication: BLOOD PRESSURE MEASUREMENT
     Route: 048
  8. QUINAPRIL. [Concomitant]
     Active Substance: QUINAPRIL
     Dosage: 2 TABS DINNER/ 80 MG ;ONGOING: YES
     Route: 048
  9. BACLOFEN. [Concomitant]
     Active Substance: BACLOFEN

REACTIONS (11)
  - Fall [Unknown]
  - Oedema [Not Recovered/Not Resolved]
  - Hallucination [Recovered/Resolved]
  - Fatigue [Not Recovered/Not Resolved]
  - Amnesia [Not Recovered/Not Resolved]
  - Muscular weakness [Not Recovered/Not Resolved]
  - Therapeutic product effect decreased [Unknown]
  - Confusional state [Not Recovered/Not Resolved]
  - Urinary tract infection [Recovered/Resolved]
  - Hypotension [Recovered/Resolved]
  - Weight decreased [Not Recovered/Not Resolved]

NARRATIVE: CASE EVENT DATE: 2019
